FAERS Safety Report 10173479 (Version 2)
Quarter: 2014Q2

REPORT INFORMATION
  Report Type: Spontaneous
  Country: US (occurrence: US)
  Receive Date: 20140515
  Receipt Date: 20140528
  Transmission Date: 20141212
  Serious: No
  Sender: FDA-Public Use
  Company Number: US-TEVA-481867USA

PATIENT
  Age: 21 Year
  Sex: Female
  Weight: 68.1 kg

DRUGS (3)
  1. PLAN B ONE-STEP [Suspect]
     Indication: POST COITAL CONTRACEPTION
     Dosage: 1.5 MILLIGRAM DAILY;
     Route: 048
     Dates: start: 20140429, end: 20140429
  2. SPIRONOLACTONE [Concomitant]
     Indication: POLYCYSTIC OVARIES
  3. METFORMIN [Concomitant]
     Indication: HORMONE LEVEL ABNORMAL

REACTIONS (3)
  - Pruritus [Recovered/Resolved]
  - Rash generalised [Recovered/Resolved]
  - Capillary fragility [Recovered/Resolved]
